FAERS Safety Report 6113258-8 (Version None)
Quarter: 2009Q1

REPORT INFORMATION
  Report Type: 
  Country: None (occurrence: None)
  Receive Date: 20090312
  Receipt Date: 20090305
  Transmission Date: 20090719
  Serious: Yes (Hospitalization, Other)
  Sender: FDA-Public Use
  Company Number: AU-GENENTECH-271253

PATIENT
  Sex: Male
  Weight: 160 kg

DRUGS (2)
  1. RAPTIVA [Suspect]
     Indication: PSORIASIS
     Dosage: 1 MG/KG, 1/WEEK
     Route: 058
  2. ACITRETIN [Concomitant]
     Indication: DRUG USE FOR UNKNOWN INDICATION
     Dosage: UNK

REACTIONS (3)
  - CELLULITIS [None]
  - LIMB INJURY [None]
  - PERTUSSIS [None]
